FAERS Safety Report 9784387 (Version 2)
Quarter: 2014Q1

REPORT INFORMATION
  Report Type: Spontaneous
  Country: US (occurrence: US)
  Receive Date: 20131226
  Receipt Date: 20140219
  Transmission Date: 20141002
  Serious: No
  Sender: FDA-Public Use
  Company Number: US-BIOGENIDEC-2013BI121763

PATIENT
  Age: 32 Year
  Sex: Male
  Weight: 83 kg

DRUGS (4)
  1. TECFIDERA [Suspect]
     Indication: PRODUCT USED FOR UNKNOWN INDICATION
     Route: 048
  2. TECFIDERA [Suspect]
     Indication: PRODUCT USED FOR UNKNOWN INDICATION
     Route: 048
  3. IBUPROFEN [Concomitant]
  4. TYLENOL [Concomitant]

REACTIONS (7)
  - Body temperature increased [Unknown]
  - Nausea [Unknown]
  - Vomiting [Unknown]
  - Gastroenteritis viral [Unknown]
  - Diarrhoea [Unknown]
  - Flushing [Unknown]
  - Abdominal pain upper [Unknown]
